FAERS Safety Report 8421520-9 (Version None)
Quarter: 2012Q2

REPORT INFORMATION
  Report Type: 
  Country: None (occurrence: None)
  Receive Date: 20120601
  Receipt Date: 20120519
  Transmission Date: 20120825
  Serious: Yes (Hospitalization)
  Sender: FDA-Public Use
  Company Number: UTC-019091

PATIENT
  Age: 49 Year
  Sex: Female
  Weight: 59.09 kg

DRUGS (2)
  1. REMODULIN [Suspect]
     Indication: COR PULMONALE CHRONIC
     Dosage: (40 NANGM), SUBCUTANEOUS
     Route: 058
     Dates: start: 20120402
  2. DIURETICS (DIURETICS) [Concomitant]

REACTIONS (6)
  - DYSPNOEA [None]
  - MALAISE [None]
  - FLUSHING [None]
  - OVERDOSE [None]
  - HEADACHE [None]
  - DIZZINESS [None]
